FAERS Safety Report 8233442-7 (Version None)
Quarter: 2012Q1

REPORT INFORMATION
  Report Type: 
  Country: None (occurrence: None)
  Receive Date: 20120326
  Receipt Date: 20120314
  Transmission Date: 20120608
  Serious: Yes (Other)
  Sender: FDA-Public Use
  Company Number: US-ELI_LILLY_AND_COMPANY-US201104005959

PATIENT
  Sex: Female

DRUGS (1)
  1. FORTEO [Suspect]
     Indication: OSTEOPOROSIS
     Dosage: UNK, UNKNOWN

REACTIONS (8)
  - BLADDER OPERATION [None]
  - DYSSTASIA [None]
  - ASTHENIA [None]
  - GASTROINTESTINAL SURGERY [None]
  - FALL [None]
  - INSOMNIA [None]
  - ALOPECIA [None]
  - MALAISE [None]
